FAERS Safety Report 4701016-8 (Version None)
Quarter: 2005Q2

REPORT INFORMATION
  Report Type: 
  Country: None (occurrence: None)
  Receive Date: 20050624
  Receipt Date: 20050613
  Transmission Date: 20051028
  Serious: Yes (Hospitalization)
  Sender: FDA-Public Use
  Company Number: 2005064129

PATIENT
  Age: 67 Year
  Sex: Female
  Weight: 81.6475 kg

DRUGS (2)
  1. ZITHROMAX [Suspect]
     Indication: VIRAL INFECTION
     Dosage: 250 MG (250 MG, 1 IN 1 D), ORAL
     Route: 048
     Dates: start: 20050321, end: 20050323
  2. GLYBURIDE [Suspect]
     Indication: DIABETES MELLITUS
     Dosage: ORAL
     Route: 048

REACTIONS (4)
  - DRUG INTERACTION [None]
  - HYPOGLYCAEMIA [None]
  - MENTAL STATUS CHANGES [None]
  - ORAL INTAKE REDUCED [None]
